FAERS Safety Report 8352652 (Version 3)
Quarter: 2014Q2

REPORT INFORMATION
  Report Type: Spontaneous
  Country: US (occurrence: US)
  Receive Date: 20120124
  Receipt Date: 20140414
  Transmission Date: 20141212
  Serious: Yes (Other)
  Sender: FDA-Public Use
  Company Number: US-AMGEN-USASP2011054858

PATIENT
  Age: 77 Year
  Sex: Female

DRUGS (3)
  1. PROLIA [Suspect]
     Indication: OSTEOPOROSIS POSTMENOPAUSAL
     Dosage: 60 MG, Q6MO
     Route: 058
     Dates: start: 201104
  2. HIZENTRA [Concomitant]
  3. SYNTHROID [Concomitant]

REACTIONS (7)
  - Tooth abscess [Not Recovered/Not Resolved]
  - Sensitivity of teeth [Not Recovered/Not Resolved]
  - Tooth disorder [Unknown]
  - Toothache [Not Recovered/Not Resolved]
  - Gingival pain [Unknown]
  - Device failure [Unknown]
  - Rash erythematous [Recovered/Resolved]
